FAERS Safety Report 6455461-3 (Version None)
Quarter: 2009Q4

REPORT INFORMATION
  Report Type: 
  Country: None (occurrence: None)
  Receive Date: 20091125
  Receipt Date: 20091009
  Transmission Date: 20100525
  Serious: No
  Sender: FDA-Public Use
  Company Number: US-ABBOTT-09P-163-0602407-00

PATIENT
  Sex: Female
  Weight: 80.812 kg

DRUGS (1)
  1. SIMCOR [Suspect]
     Indication: BLOOD CHOLESTEROL INCREASED
     Dosage: 500/20MG
     Dates: start: 20090901

REACTIONS (3)
  - PARAESTHESIA [None]
  - PRURITUS [None]
  - VARICOSE VEIN [None]
